FAERS Safety Report 12391821 (Version 1)
Quarter: 2016Q2

REPORT INFORMATION
  Report Type: Report from Study
  Country: US (occurrence: US)
  Receive Date: 20160523
  Receipt Date: 20160523
  Transmission Date: 20160815
  Serious: No
  Sender: FDA-Public Use
  Company Number: ALCN2012US006915

PATIENT

DRUGS (1)
  1. CIPRODEX [Suspect]
     Active Substance: CIPROFLOXACIN HYDROCHLORIDE\DEXAMETHASONE
     Indication: OTITIS MEDIA ACUTE
     Dosage: UNK
     Route: 001

REACTIONS (1)
  - Drug ineffective [Unknown]
